FAERS Safety Report 20493076 (Version 1)
Quarter: 2022Q1

REPORT INFORMATION
  Report Type: Spontaneous
  Country: DE (occurrence: DE)
  Receive Date: 20220220
  Receipt Date: 20220220
  Transmission Date: 20220424
  Serious: Yes (Other)
  Sender: FDA-Public Use
  Company Number: None

PATIENT
  Sex: Male

DRUGS (1)
  1. CEFUROXIME AXETIL [Suspect]
     Active Substance: CEFUROXIME AXETIL
     Indication: Epididymitis
     Dosage: UNK
     Route: 065

REACTIONS (11)
  - Haematemesis [Recovering/Resolving]
  - Dysphonia [Recovered/Resolved]
  - Movement disorder [Recovering/Resolving]
  - Myalgia [Recovering/Resolving]
  - Vomiting projectile [Recovering/Resolving]
  - Laryngeal discomfort [Recovered/Resolved]
  - Dehydration [Recovered/Resolved]
  - Nervousness [Recovering/Resolving]
  - Retching [Recovering/Resolving]
  - Somnolence [Recovering/Resolving]
  - Vomiting [Recovering/Resolving]
